FAERS Safety Report 6658202-X (Version None)
Quarter: 2010Q1

REPORT INFORMATION
  Report Type: 
  Country: None (occurrence: None)
  Receive Date: 20100330
  Receipt Date: 20100318
  Transmission Date: 20100710
  Serious: Yes (Hospitalization)
  Sender: FDA-Public Use
  Company Number: JP-MERCK-0911USA01853

PATIENT
  Age: 83 Year
  Sex: Female

DRUGS (11)
  1. FOSAMAX [Suspect]
     Indication: OSTEOPOROSIS
     Route: 048
     Dates: start: 20051001, end: 20060401
  2. FOSAMAX [Suspect]
     Route: 048
     Dates: start: 20081001, end: 20090401
  3. CELECOX [Concomitant]
     Indication: ANALGESIC THERAPY
     Route: 048
  4. PEPCID [Concomitant]
     Indication: GASTRITIS
     Route: 048
  5. NEUROVITAN [Concomitant]
     Indication: VITAMIN SUPPLEMENTATION
     Route: 048
     Dates: start: 20080101
  6. ALFAROL [Concomitant]
     Indication: OSTEOPOROSIS
     Route: 048
     Dates: start: 20030501
  7. SODIUM BICARBONATE [Concomitant]
     Indication: RENAL FAILURE CHRONIC
     Route: 048
     Dates: start: 20051201
  8. SOLANAX [Concomitant]
     Indication: INSOMNIA
     Route: 048
     Dates: start: 20051201
  9. LASIX [Concomitant]
     Indication: HYPERTENSION
     Route: 048
     Dates: start: 20060801
  10. ACTONEL [Suspect]
     Indication: OSTEOPOROSIS
     Route: 048
     Dates: start: 20080129, end: 20081001
  11. KALIMATE [Concomitant]
     Indication: RENAL FAILURE CHRONIC
     Dosage: SACHET
     Route: 048
     Dates: start: 20020401

REACTIONS (1)
  - FEMUR FRACTURE [None]
